FAERS Safety Report 12997172 (Version 3)
Quarter: 2020Q4

REPORT INFORMATION
  Report Type: Other
  Country: US (occurrence: US)
  Receive Date: 20161205
  Receipt Date: 20201012
  Transmission Date: 20210113
  Serious: Yes (Other)
  Sender: FDA-Public Use
  Company Number: US-ROCHE-1862829

PATIENT

DRUGS (2)
  1. EVEROLIMUS. [Suspect]
     Active Substance: EVEROLIMUS
     Indication: RENAL CELL CARCINOMA
     Route: 048
  2. BEVACIZUMAB. [Suspect]
     Active Substance: BEVACIZUMAB
     Indication: RENAL CELL CARCINOMA
     Route: 042

REACTIONS (28)
  - Hypertension [Unknown]
  - Cough [Unknown]
  - Fatigue [Unknown]
  - Hyperglycaemia [Unknown]
  - Epistaxis [Unknown]
  - Pleural effusion [Unknown]
  - White blood cell count decreased [Unknown]
  - Hypertriglyceridaemia [Unknown]
  - Constipation [Unknown]
  - Oedema peripheral [Unknown]
  - Hypernatraemia [Unknown]
  - Pain [Unknown]
  - Aspartate aminotransferase increased [Unknown]
  - Alanine aminotransferase increased [Unknown]
  - Platelet count decreased [Unknown]
  - Nausea [Unknown]
  - Vomiting [Unknown]
  - Stomatitis [Unknown]
  - Proteinuria [Unknown]
  - Diarrhoea [Unknown]
  - Peripheral sensory neuropathy [Unknown]
  - Oropharyngeal pain [Unknown]
  - Hyperkalaemia [Unknown]
  - Blood alkaline phosphatase increased [Unknown]
  - Rash [Unknown]
  - Dyspnoea [Unknown]
  - Lymphocyte count decreased [Unknown]
  - Blood creatinine increased [Unknown]
